FAERS Safety Report 4451196-7 (Version None)
Quarter: 2004Q3

REPORT INFORMATION
  Report Type: 
  Country: None (occurrence: None)
  Receive Date: 20040914
  Receipt Date: 20040901
  Transmission Date: 20050211
  Serious: Yes (Death)
  Sender: FDA-Public Use
  Company Number: WAES 0409USA00297

PATIENT
  Age: 82 Year
  Sex: Female

DRUGS (5)
  1. COZAAR [Suspect]
     Indication: HYPERTENSION
     Dosage: 50 MG/DAILY PO
     Route: 048
     Dates: start: 20011029, end: 20040126
  2. ACTONEL [Concomitant]
  3. EPADEL [Concomitant]
  4. LANIRAPID [Concomitant]
  5. TANATRIL [Concomitant]

REACTIONS (3)
  - INJURY ASPHYXIATION [None]
  - LARGE INTESTINE CARCINOMA [None]
  - METASTASES TO LIVER [None]
